FAERS Safety Report 9288460 (Version 2)
Quarter: 2013Q2

REPORT INFORMATION
  Report Type: Spontaneous
  Country: US (occurrence: US)
  Receive Date: 20130514
  Receipt Date: 20130514
  Transmission Date: 20140414
  Serious: No
  Sender: FDA-Public Use
  Company Number: US-OPTIMER PHARMACEUTICALS, INC.-20110015

PATIENT
  Sex: 0

DRUGS (9)
  1. DIFICID [Suspect]
     Indication: CLOSTRIDIUM DIFFICILE COLITIS
     Dosage: 200 MG, BID
     Route: 048
     Dates: start: 20110803, end: 20110820
  2. DIFICID [Suspect]
     Dosage: 200 MG, BID
     Route: 048
     Dates: start: 20110901
  3. VANCOMYCIN [Concomitant]
     Indication: CLOSTRIDIUM TEST POSITIVE
     Dosage: 250 MG, QID
     Dates: start: 20110426
  4. VANCOMYCIN [Concomitant]
     Dosage: 500 MG, QID
     Route: 048
     Dates: start: 201105
  5. VANCOMYCIN [Concomitant]
     Dosage: UNK
     Route: 048
     Dates: start: 20110901, end: 20110902
  6. FLAGYL [Concomitant]
     Indication: CLOSTRIDIUM TEST POSITIVE
     Dosage: UNK
     Dates: start: 201103
  7. FLAGYL [Concomitant]
     Dosage: 300 MG, TID
     Dates: start: 201105
  8. FLAGYL [Concomitant]
     Dosage: 500 MG, TID
     Dates: start: 201105
  9. FLORASTOR [Concomitant]
     Indication: DIARRHOEA
     Dosage: 2 TABLETS BID
     Dates: start: 20110426

REACTIONS (6)
  - Disease recurrence [Unknown]
  - Pathogen resistance [Unknown]
  - Weight decreased [Unknown]
  - Frequent bowel movements [Unknown]
  - Gastrointestinal sounds abnormal [Unknown]
  - Off label use [Unknown]
